FAERS Safety Report 10172854 (Version 3)
Quarter: 2014Q3

REPORT INFORMATION
  Report Type: Spontaneous
  Country: CN (occurrence: CN)
  Receive Date: 20140515
  Receipt Date: 20140701
  Transmission Date: 20150326
  Serious: Yes (Hospitalization)
  Sender: FDA-Public Use
  Company Number: CN-GLAXOSMITHKLINE-B0992128A

PATIENT
  Age: 40 Year
  Sex: Male
  Weight: 85 kg

DRUGS (1)
  1. HEPTODIN [Suspect]
     Active Substance: LAMIVUDINE
     Indication: HEPATITIS B
     Dosage: 1TAB PER DAY
     Route: 048
     Dates: start: 20131215

REACTIONS (28)
  - Asthenia [Unknown]
  - Pneumatosis [Unknown]
  - Fear [Unknown]
  - Skin discolouration [Not Recovered/Not Resolved]
  - Headache [Unknown]
  - Dizziness [Not Recovered/Not Resolved]
  - Convulsion [Unknown]
  - Flatulence [Unknown]
  - Duodenitis [Unknown]
  - Pruritus [Not Recovered/Not Resolved]
  - Feeling abnormal [Unknown]
  - Arthralgia [Not Recovered/Not Resolved]
  - Poor quality sleep [Unknown]
  - Arthralgia [Unknown]
  - Malaise [Unknown]
  - Neuropathy peripheral [Unknown]
  - Arthralgia [Not Recovered/Not Resolved]
  - Duodenal ulcer [Recovering/Resolving]
  - Pain in extremity [Unknown]
  - Cold sweat [Unknown]
  - Weight decreased [Unknown]
  - Hypoaesthesia [Not Recovered/Not Resolved]
  - Urine analysis abnormal [Unknown]
  - Chronic gastritis [Recovering/Resolving]
  - Hypoaesthesia [Not Recovered/Not Resolved]
  - Abdominal discomfort [Unknown]
  - Panic reaction [Unknown]
  - Chills [Unknown]

NARRATIVE: CASE EVENT DATE: 201401
